FAERS Safety Report 13663477 (Version 2)
Quarter: 2017Q2

REPORT INFORMATION
  Report Type: Spontaneous
  Country: US (occurrence: US)
  Receive Date: 20170619
  Receipt Date: 20170621
  Transmission Date: 20170830
  Serious: No
  Sender: FDA-Public Use
  Company Number: US-PFIZER INC-2017263128

PATIENT
  Age: 71 Year
  Sex: Female

DRUGS (7)
  1. IBRANCE [Suspect]
     Active Substance: PALBOCICLIB
     Indication: BREAST CANCER METASTATIC
     Dosage: 150MG, CYCLIC (ONCE A DAY FOR 21 DAYS THEN OFF FOR 7 DAYS)
  2. XGEVA [Concomitant]
     Active Substance: DENOSUMAB
     Indication: BONE DISORDER
     Dosage: INJECTION ONCE A MONTH
     Dates: end: 201611
  3. IBRANCE [Suspect]
     Active Substance: PALBOCICLIB
     Dosage: 75 MG, CYCLIC (ONCE A DAY FOR 21 DAYS OFF FOR 7 DAYS)
  4. FASLODEX [Concomitant]
     Active Substance: FULVESTRANT
     Indication: HORMONE LEVEL ABNORMAL
     Dosage: INJECTION BOTH SIDES OF BUTT ONCE A MONTH
  5. CALCIUM 600 WITH VITAMIN D3 [Concomitant]
     Active Substance: CALCIUM CARBONATE\VITAMIN D
     Dosage: PER 2 TABLETS - [1200MG CALCIUM CARBONATE]/[600IU COLECALCIFEROL]; TAKES 2 TABLETS ONCE A DAY
  6. GLUCOSAMINE [Concomitant]
     Active Substance: GLUCOSAMINE
     Indication: ARTHROPATHY
     Dosage: 2 TABLETS ONCE A DAY
  7. IBRANCE [Suspect]
     Active Substance: PALBOCICLIB
     Dosage: 100MG, CYCLIC (ONCE A DAY FOR 21 DAYS OFF FOR 7 DAYS)

REACTIONS (11)
  - Lip pain [Not Recovered/Not Resolved]
  - Chapped lips [Not Recovered/Not Resolved]
  - Weight decreased [Unknown]
  - Mouth ulceration [Unknown]
  - Skin fissures [Recovered/Resolved]
  - White blood cell count decreased [Recovering/Resolving]
  - Loose tooth [Unknown]
  - Mouth swelling [Unknown]
  - Platelet count decreased [Unknown]
  - Gingival swelling [Not Recovered/Not Resolved]
  - Oral pain [Unknown]
